FAERS Safety Report 23858332 (Version 1)
Quarter: 2024Q2

REPORT INFORMATION
  Report Type: Spontaneous
  Country: JP (occurrence: JP)
  Receive Date: 20240515
  Receipt Date: 20240515
  Transmission Date: 20240716
  Serious: Yes (Hospitalization, Other)
  Sender: FDA-Public Use
  Company Number: JP-SUN PHARMACEUTICAL INDUSTRIES LTD-2024R1-446186

PATIENT
  Age: 73 Year
  Sex: Male

DRUGS (1)
  1. LITHIUM [Suspect]
     Active Substance: LITHIUM
     Indication: Parkinsonism
     Route: 065

REACTIONS (5)
  - Renal impairment [Unknown]
  - Toxicity to various agents [Unknown]
  - Parkinson^s disease [Unknown]
  - Food intolerance [Unknown]
  - Communication disorder [Unknown]
